FAERS Safety Report 14165205 (Version 1)
Quarter: 2017Q4

REPORT INFORMATION
  Report Type: Spontaneous
  Country: US (occurrence: None)
  Receive Date: 20171107
  Receipt Date: 20171107
  Transmission Date: 20180321
  Serious: Yes (Other)
  Sender: FDA-Public Use
  Company Number: None

PATIENT
  Age: 30 Year
  Sex: Female
  Weight: 100.7 kg

DRUGS (2)
  1. LATUDA [Suspect]
     Active Substance: LURASIDONE HYDROCHLORIDE
  2. ATTERAX [Concomitant]

REACTIONS (6)
  - Asthma [None]
  - Seasonal allergy [None]
  - Gastrooesophageal reflux disease [None]
  - Palpitations [None]
  - Vomiting in pregnancy [None]
  - Maternal exposure during pregnancy [None]
